FAERS Safety Report 23745204 (Version 3)
Quarter: 2024Q2

REPORT INFORMATION
  Report Type: Spontaneous
  Country: BG (occurrence: BG)
  Receive Date: 20240416
  Receipt Date: 20240503
  Transmission Date: 20240716
  Serious: Yes (Death)
  Sender: FDA-Public Use
  Company Number: BG-002147023-NVSC2024BG077965

PATIENT
  Age: 29 Year
  Sex: Male
  Weight: 90 kg

DRUGS (3)
  1. TOBRADEX [Suspect]
     Active Substance: DEXAMETHASONE\TOBRAMYCIN
     Indication: Hypoacusis
     Dosage: UNK UNK, QD (2-3 DROPS, APPLIED IN THE EARS 3-4 TIMES DAILY FOR 3 DAYS)
     Route: 001
     Dates: start: 20231220, end: 202312
  2. TOBRADEX [Suspect]
     Active Substance: DEXAMETHASONE\TOBRAMYCIN
     Indication: Deafness
     Dosage: UNK UNK, QD (3-4 TIMES DAILY, OTIC)
     Route: 065
     Dates: start: 20231220, end: 202312
  3. Influcid [Concomitant]
     Indication: Nasopharyngitis
     Route: 065

REACTIONS (4)
  - Off label use [Fatal]
  - Ear pain [Fatal]
  - Completed suicide [Fatal]
  - Tinnitus [Fatal]

NARRATIVE: CASE EVENT DATE: 20231201
